FAERS Safety Report 14191291 (Version 3)
Quarter: 2017Q4

REPORT INFORMATION
  Report Type: Spontaneous
  Country: CH (occurrence: CH)
  Receive Date: 20171115
  Receipt Date: 20171222
  Transmission Date: 20180321
  Serious: Yes (Other)
  Sender: FDA-Public Use
  Company Number: CH-PFIZER INC-2017482957

PATIENT
  Age: 56 Year
  Sex: Male

DRUGS (17)
  1. MYAMBUTOL [Concomitant]
     Active Substance: ETHAMBUTOL HYDROCHLORIDE
     Dosage: 2 G, DAILY
     Dates: start: 201706
  2. MOVICOL [Concomitant]
     Active Substance: POLYETHYLENE GLYCOL 3350\POTASSIUM CHLORIDE\SODIUM BICARBONATE\SODIUM CHLORIDE
     Dosage: 1 DF, 2X/DAY (1 SACHET)
     Route: 048
  3. ENALAPRIL [Concomitant]
     Active Substance: ENALAPRIL
     Dosage: 5MG, 2X/DAY
     Route: 048
  4. NEXIUM [Concomitant]
     Active Substance: ESOMEPRAZOLE MAGNESIUM
     Dosage: 40MG, 1X/DAY
     Route: 048
  5. GLUCOPHAGE [Concomitant]
     Active Substance: METFORMIN HYDROCHLORIDE
     Dosage: 500MG, 2X/DAY
     Route: 048
  6. LAXOBERON [Concomitant]
     Active Substance: SODIUM PICOSULFATE
     Dosage: 10MG, 1X/DAY
     Route: 048
  7. ZITHROMAX [Concomitant]
     Active Substance: AZITHROMYCIN DIHYDRATE
     Dosage: 500MG, 1X/DAY
     Route: 048
     Dates: start: 201706
  8. LAMICTAL [Suspect]
     Active Substance: LAMOTRIGINE
     Indication: SEIZURE
     Dosage: 150MG, 2X/DAY
     Route: 048
     Dates: start: 201702
  9. BACTRIM [Concomitant]
     Active Substance: SULFAMETHOXAZOLE\TRIMETHOPRIM
     Indication: PROPHYLAXIS
     Dosage: 1 DF (160 MG TM), 3X/WEEK
     Route: 048
  10. MYCOBUTIN [Suspect]
     Active Substance: RIFABUTIN
     Dosage: 300MG, 1X/DAY
     Route: 048
     Dates: start: 201706
  11. TRIUMEQ [Interacting]
     Active Substance: ABACAVIR SULFATE\DOLUTEGRAVIR SODIUM\LAMIVUDINE
     Indication: HIV INFECTION
     Dosage: 1 DF, 1X/DAY (1 TABLET)
     Route: 048
     Dates: start: 201703
  12. MYAMBUTOL [Concomitant]
     Active Substance: ETHAMBUTOL HYDROCHLORIDE
     Dosage: 1200 MG, DAILY
     Route: 048
  13. VALTREX [Concomitant]
     Active Substance: VALACYCLOVIR HYDROCHLORIDE
     Dosage: 500MG, 2X/DAY
     Route: 048
  14. CLARITHROMYCIN. [Concomitant]
     Active Substance: CLARITHROMYCIN
     Dosage: 500 MG, 2X/DAY, GIVEN FOR DAYS, RAPIDLY REPLACED BY AZITHROMYCIN
     Route: 048
     Dates: start: 201706, end: 201706
  15. ISONIAZID. [Concomitant]
     Active Substance: ISONIAZID
     Dosage: 300 MG, DAILY
     Route: 048
     Dates: start: 201706
  16. PYRAZINAMID [Concomitant]
     Active Substance: PYRAZINAMIDE
     Dosage: 2 G, 1X/DAY
     Dates: start: 201706
  17. VALPROIC ACID. [Concomitant]
     Active Substance: VALPROIC ACID
     Indication: SEIZURE
     Dosage: UNK

REACTIONS (2)
  - Drug interaction [Recovering/Resolving]
  - Chemotherapeutic drug level decreased [Recovered/Resolved]

NARRATIVE: CASE EVENT DATE: 201706
